FAERS Safety Report 9639131 (Version 2)
Quarter: 2013Q4

REPORT INFORMATION
  Report Type: Spontaneous
  Country: GB (occurrence: GB)
  Receive Date: 20131022
  Receipt Date: 20131022
  Transmission Date: 20140711
  Serious: Yes (Other)
  Sender: FDA-Public Use
  Company Number: GB-WATSON-2013-19093

PATIENT
  Age: 63 Year
  Sex: Female
  Weight: 78 kg

DRUGS (4)
  1. PREDNISOLONE (UNKNOWN) [Suspect]
     Indication: POST THROMBOTIC SYNDROME
     Dosage: 20 MG, DAILY
     Route: 065
  2. FUCIBET CREAM [Suspect]
     Indication: POST THROMBOTIC SYNDROME
     Dosage: 30G CREAM FOR 2 WEEKS AND 4 WEEKS OVER 6 MONTHS
     Route: 065
  3. ELOCON [Suspect]
     Indication: POST THROMBOTIC SYNDROME
     Dosage: 30G CREAM FOR 2 WEEKS AND 4 WEEKS OVER 6 MONTHS
     Route: 065
  4. AMITRIPTYLINE [Concomitant]
     Indication: PRODUCT USED FOR UNKNOWN INDICATION
     Dosage: UNK
     Route: 065

REACTIONS (9)
  - Lipoatrophy [Not Recovered/Not Resolved]
  - Pain [Not Recovered/Not Resolved]
  - Skin wrinkling [Not Recovered/Not Resolved]
  - Emotional distress [Not Recovered/Not Resolved]
  - Mobility decreased [Not Recovered/Not Resolved]
  - Fat redistribution [Not Recovered/Not Resolved]
  - Activities of daily living impaired [Not Recovered/Not Resolved]
  - Eye pain [Not Recovered/Not Resolved]
  - Deformity [Not Recovered/Not Resolved]
